FAERS Safety Report 20407978 (Version 1)
Quarter: 2022Q1

REPORT INFORMATION
  Report Type: Spontaneous
  Country: PT (occurrence: PT)
  Receive Date: 20220201
  Receipt Date: 20220201
  Transmission Date: 20220423
  Serious: Yes (Death, Hospitalization, Other)
  Sender: FDA-Public Use
  Company Number: PT-CELLTRION INC.-2022PT000912

PATIENT

DRUGS (3)
  1. RITUXIMAB [Suspect]
     Active Substance: RITUXIMAB
     Indication: Acquired haemophilia
     Dosage: 600 MG, WEEKLY AND WAS MAINTAINED FOR ANOTHER FOUR WEEKS
  2. PREDNISOLONE [Suspect]
     Active Substance: PREDNISOLONE
     Indication: Acquired haemophilia
     Dosage: 60 MG/DAY; AND WAS TAPERED FOR 12 WEEKS
  3. CYCLOPHOSPHAMIDE [Suspect]
     Active Substance: CYCLOPHOSPHAMIDE
     Indication: Acquired haemophilia
     Dosage: 100 MG/DAY AND WAS MAINTAINED FOR ANOTHER SIX WEEKS

REACTIONS (7)
  - Pseudomonas infection [Fatal]
  - Sepsis [Fatal]
  - Therapy non-responder [Fatal]
  - Oesophageal candidiasis [Unknown]
  - Herpes zoster [Unknown]
  - Urinary tract infection [Unknown]
  - Off label use [Unknown]
